FAERS Safety Report 6177783-6 (Version None)
Quarter: 2009Q2

REPORT INFORMATION
  Report Type: 
  Country: None (occurrence: None)
  Receive Date: 20090501
  Receipt Date: 20090501
  Transmission Date: 20091009
  Serious: No
  Sender: FDA-Public Use
  Company Number: None

PATIENT
  Age: 64 Year
  Sex: Male

DRUGS (7)
  1. OXAZEPAM [Suspect]
     Indication: ANXIETY
     Dosage: 10MG PO Q8HR
     Route: 048
     Dates: start: 20090306
  2. TEMAZEPAM [Suspect]
     Indication: ANXIETY
     Dosage: 15MG PO X 1
     Route: 048
     Dates: start: 20090306
  3. HEPARIN [Concomitant]
  4. DOCUSATE [Concomitant]
  5. LANSOPRAZOLE [Concomitant]
  6. NICOTINE [Concomitant]
  7. TAMSULOSIN HCL [Concomitant]

REACTIONS (1)
  - SOMNOLENCE [None]
